FAERS Safety Report 17347575 (Version 2)
Quarter: 2020Q2

REPORT INFORMATION
  Report Type: Spontaneous
  Country: US (occurrence: US)
  Receive Date: 20200130
  Receipt Date: 20200604
  Transmission Date: 20200713
  Serious: No
  Sender: FDA-Public Use
  Company Number: US-VERTEX PHARMACEUTICALS-2020-001442

PATIENT
  Age: 48 Year
  Sex: Female
  Weight: 72 kg

DRUGS (2)
  1. TRIKAFTA [Suspect]
     Active Substance: ELEXACAFTOR\IVACAFTOR\TEZACAFTOR
     Indication: CYSTIC FIBROSIS
     Dosage: 100 MG ELEXACAFTOR/ 50 MG TEZACAFTOR/ 75 MG IVACAFTOR, 150MG IVACAFTOR, FREQ UNK
     Route: 048
     Dates: start: 20191211
  2. SODIUM CHLORIDE. [Concomitant]
     Active Substance: SODIUM CHLORIDE
     Dosage: UNK

REACTIONS (2)
  - Tinnitus [Not Recovered/Not Resolved]
  - Respiratory tract infection viral [Recovered/Resolved]

NARRATIVE: CASE EVENT DATE: 202001
